FAERS Safety Report 10801194 (Version 4)
Quarter: 2015Q1

REPORT INFORMATION
  Report Type: Spontaneous
  Country: JP (occurrence: JP)
  Receive Date: 20150217
  Receipt Date: 20150226
  Transmission Date: 20150721
  Serious: Yes (Hospitalization, Other)
  Sender: FDA-Public Use
  Company Number: JP-009507513-1502JPN006730

PATIENT
  Age: 69 Year
  Sex: Male

DRUGS (8)
  1. RABEPRAZOLE SODIUM. [Concomitant]
     Active Substance: RABEPRAZOLE SODIUM
     Indication: LYMPHADENITIS
  2. LACTOMIN [Concomitant]
     Active Substance: LACTOBACILLUS ACIDOPHILUS
     Indication: LYMPHADENITIS
     Dosage: UNK
     Dates: end: 20120608
  3. JANUVIA [Suspect]
     Active Substance: SITAGLIPTIN PHOSPHATE
     Dosage: UNK
     Route: 048
     Dates: end: 20120608
  4. LEVOFLOXACIN. [Suspect]
     Active Substance: LEVOFLOXACIN
     Indication: LYMPHADENITIS
     Dosage: UNK
     Route: 048
     Dates: end: 20120608
  5. HYDROCHLOROTHIAZIDE (+) TELMISARTAN [Concomitant]
     Active Substance: HYDROCHLOROTHIAZIDE\TELMISARTAN
     Dosage: UNK
     Dates: end: 20120608
  6. METFORMIN HYDROCHLORIDE. [Concomitant]
     Active Substance: METFORMIN HYDROCHLORIDE
     Dosage: UNK
     Dates: end: 20120608
  7. CEFMETAZOLE SODIUM [Concomitant]
     Active Substance: CEFMETAZOLE SODIUM
  8. MEROPENEM. [Concomitant]
     Active Substance: MEROPENEM

REACTIONS (5)
  - Renal function test abnormal [Unknown]
  - Blood urine present [Unknown]
  - Liver function test abnormal [Unknown]
  - Lymphadenitis [Unknown]
  - Haemolytic anaemia [Unknown]

NARRATIVE: CASE EVENT DATE: 201206
